FAERS Safety Report 17263630 (Version 6)
Quarter: 2020Q2

REPORT INFORMATION
  Report Type: Spontaneous
  Country: US (occurrence: US)
  Receive Date: 20200113
  Receipt Date: 20200602
  Transmission Date: 20200713
  Serious: Yes (Hospitalization, Other)
  Sender: FDA-Public Use
  Company Number: US-BRISTOL-MYERS SQUIBB COMPANY-BMS-2020-002248

PATIENT
  Sex: Female

DRUGS (1)
  1. SPRYCEL [Suspect]
     Active Substance: DASATINIB
     Indication: PRODUCT USED FOR UNKNOWN INDICATION
     Dosage: 100 MILLIGRAM, QD
     Route: 048

REACTIONS (10)
  - Burning sensation [Unknown]
  - Urinary tract infection [Unknown]
  - Skin discolouration [Unknown]
  - Joint swelling [Unknown]
  - Eczema [Unknown]
  - Pneumonia [Unknown]
  - Arthralgia [Unknown]
  - Skin hyperpigmentation [Unknown]
  - Impaired healing [Unknown]
  - Malaise [Unknown]
